FAERS Safety Report 4933060-X (Version None)
Quarter: 2006Q1

REPORT INFORMATION
  Report Type: 
  Country: None (occurrence: None)
  Receive Date: 20060306
  Receipt Date: 20060224
  Transmission Date: 20060701
  Serious: Yes (Disabling)
  Sender: FDA-Public Use
  Company Number: PHBS2006IT03178

PATIENT
  Age: 62 Year
  Sex: Female

DRUGS (2)
  1. XELODA [Concomitant]
     Dates: start: 20030601
  2. ZOMETA [Suspect]
     Indication: METASTASES TO BONE
     Dosage: 4 MG, QMO
     Route: 042
     Dates: start: 20030601, end: 20060113

REACTIONS (3)
  - HYPERBARIC OXYGEN THERAPY [None]
  - OSTEOMYELITIS CHRONIC [None]
  - TOOTH EXTRACTION [None]
